FAERS Safety Report 7769655-8 (Version None)
Quarter: 2011Q3

REPORT INFORMATION
  Report Type: 
  Country: None (occurrence: None)
  Receive Date: 20110922
  Receipt Date: 20110114
  Transmission Date: 20111222
  Serious: No
  Sender: FDA-Public Use
  Company Number: US-ASTRAZENECA-2011SE02731

PATIENT
  Age: 49 Year
  Sex: Female
  Weight: 68 kg

DRUGS (7)
  1. FENTORA [Concomitant]
     Indication: PAIN
     Route: 061
  2. PREMARIN [Concomitant]
     Indication: HORMONE REPLACEMENT THERAPY
  3. DIAZEPAM [Concomitant]
     Indication: SLEEP DISORDER
     Route: 048
  4. NORCHOL [Concomitant]
     Indication: PAIN
  5. SEROQUEL [Suspect]
     Indication: DEPRESSION
     Route: 048
     Dates: start: 20020101
  6. ALBUTEROL [Concomitant]
     Indication: CHRONIC OBSTRUCTIVE PULMONARY DISEASE
     Route: 055
  7. BUTORPHANOL TARTRATE [Concomitant]
     Indication: MIGRAINE
     Route: 045

REACTIONS (5)
  - WRONG TECHNIQUE IN DRUG USAGE PROCESS [None]
  - INSOMNIA [None]
  - PNEUMONIA [None]
  - DEPRESSION [None]
  - INCORRECT DOSE ADMINISTERED [None]
